FAERS Safety Report 12626790 (Version 1)
Quarter: 2016Q3

REPORT INFORMATION
  Report Type: Report from Study
  Country: CA (occurrence: CA)
  Receive Date: 20160805
  Receipt Date: 20160805
  Transmission Date: 20161109
  Serious: Yes (Other)
  Sender: FDA-Public Use
  Company Number: CA-JNJFOC-20160325615

PATIENT
  Sex: Female
  Weight: 55 kg

DRUGS (1)
  1. REMICADE [Suspect]
     Active Substance: INFLIXIMAB
     Indication: CROHN^S DISEASE
     Dosage: THERAPY DURATION: 120 MINUTES??DOSE OF 5 MG/KG
     Route: 042
     Dates: start: 20160211

REACTIONS (5)
  - Pruritus [Unknown]
  - Nasopharyngitis [Not Recovered/Not Resolved]
  - Pneumonia [Unknown]
  - Infusion related reaction [Unknown]
  - Oropharyngeal pain [Not Recovered/Not Resolved]

NARRATIVE: CASE EVENT DATE: 2016
